FAERS Safety Report 6265779-5 (Version None)
Quarter: 2009Q3

REPORT INFORMATION
  Report Type: 
  Country: None (occurrence: None)
  Receive Date: 20090713
  Receipt Date: 20090713
  Transmission Date: 20100115
  Serious: Yes (Other)
  Sender: FDA-Public Use
  Company Number: B0583288A

PATIENT
  Sex: Female

DRUGS (4)
  1. ALLI [Suspect]
     Dosage: 3CAP PER DAY
     Route: 065
     Dates: start: 20090615, end: 20090701
  2. FLUOXETINE HCL [Concomitant]
  3. XANAX [Concomitant]
  4. UNKNOWN DRUG [Concomitant]

REACTIONS (3)
  - BLOOD URINE PRESENT [None]
  - CONSTIPATION [None]
  - NEPHROLITHIASIS [None]
